FAERS Safety Report 5452326-0 (Version None)
Quarter: 2007Q3

REPORT INFORMATION
  Report Type: 
  Country: None (occurrence: None)
  Receive Date: 20070912
  Receipt Date: 20070912
  Transmission Date: 20080115
  Serious: Yes (Hospitalization)
  Sender: FDA-Public Use
  Company Number: None

PATIENT
  Sex: Male
  Weight: 77.1115 kg

DRUGS (1)
  1. ACCUTANE [Suspect]
     Indication: ACNE
     Dosage: ONE PILL TWICE A DAY PO
     Route: 048
     Dates: start: 20051015, end: 20060115

REACTIONS (8)
  - ANXIETY [None]
  - DEPRESSION [None]
  - DISTURBANCE IN ATTENTION [None]
  - EDUCATIONAL PROBLEM [None]
  - FLIGHT OF IDEAS [None]
  - HYPERSOMNIA [None]
  - MOOD ALTERED [None]
  - PSYCHOTIC DISORDER [None]
